FAERS Safety Report 16662947 (Version 1)
Quarter: 2019Q3

REPORT INFORMATION
  Report Type: Report from Study
  Country: US (occurrence: US)
  Receive Date: 20190802
  Receipt Date: 20190802
  Transmission Date: 20191004
  Serious: No
  Sender: FDA-Public Use
  Company Number: US-EXELIXIS-CABO-19019733

PATIENT
  Age: 68 Year
  Sex: Female
  Weight: 94.79 kg

DRUGS (2)
  1. CABOMETYX [Suspect]
     Active Substance: CABOZANTINIB S-MALATE
     Indication: HEPATOCELLULAR CARCINOMA
     Dosage: 60 MG, QD (03 TABS X 20MG)
     Route: 048
     Dates: start: 20190311
  2. CABOMETYX [Suspect]
     Active Substance: CABOZANTINIB S-MALATE
     Dosage: 20 MG, QD (1 PILL OF 20 MG IN MORNING WITHOUT FOOD)
     Route: 048

REACTIONS (11)
  - Malaise [Unknown]
  - Nausea [Not Recovered/Not Resolved]
  - Product taste abnormal [Unknown]
  - Pallor [Unknown]
  - Stomatitis [Not Recovered/Not Resolved]
  - Muscle spasms [Not Recovered/Not Resolved]
  - Rash pruritic [Unknown]
  - Decreased appetite [Unknown]
  - Vomiting [Unknown]
  - Feeling abnormal [Unknown]
  - Dysgeusia [Not Recovered/Not Resolved]

NARRATIVE: CASE EVENT DATE: 201903
